FAERS Safety Report 6611533-1 (Version None)
Quarter: 2010Q1

REPORT INFORMATION
  Report Type: 
  Country: None (occurrence: None)
  Receive Date: 20100303
  Receipt Date: 20100219
  Transmission Date: 20100710
  Serious: Yes (Death, Hospitalization)
  Sender: FDA-Public Use
  Company Number: PHEH2010US02342

PATIENT
  Sex: Male
  Weight: 94.875 kg

DRUGS (7)
  1. EXJADE [Suspect]
     Indication: LYMPHATIC DISORDER
     Dosage: 1500 MG, QD
     Route: 048
     Dates: start: 20100111
  2. REVLIMID [Concomitant]
     Dosage: UNK, UNK
     Route: 065
  3. MONOPRIL [Concomitant]
     Route: 048
  4. HYDROCHLOROTHIAZIDE [Concomitant]
     Route: 048
  5. CLARITIN [Concomitant]
     Route: 048
  6. GLUCOPHAGE [Concomitant]
     Route: 048
  7. ACTOS [Concomitant]

REACTIONS (2)
  - DEATH [None]
  - PNEUMONIA [None]
